FAERS Safety Report 23078619 (Version 1)
Quarter: 2023Q4

REPORT INFORMATION
  Report Type: Spontaneous
  Country: US (occurrence: None)
  Receive Date: 20231017
  Receipt Date: 20231017
  Transmission Date: 20240110
  Serious: Yes (Disabling, Other)
  Sender: FDA-Public Use
  Company Number: None

PATIENT
  Age: 42 Year
  Sex: Male
  Weight: 99 kg

DRUGS (1)
  1. CIPROFLOXACIN [Suspect]
     Active Substance: CIPROFLOXACIN
     Indication: Pseudomonas infection
     Dosage: OTHER QUANTITY : 28 TABLET(S);?FREQUENCY : TWICE A DAY;?
     Route: 048
     Dates: start: 20210421, end: 20210506

REACTIONS (12)
  - Tendon disorder [None]
  - Myalgia [None]
  - Muscle spasms [None]
  - Pancreatic failure [None]
  - Arthropathy [None]
  - Tendon disorder [None]
  - Bone disorder [None]
  - Nervous system disorder [None]
  - Cognitive disorder [None]
  - Mental impairment [None]
  - Small fibre neuropathy [None]
  - Coeliac artery compression syndrome [None]

NARRATIVE: CASE EVENT DATE: 20210421
